FAERS Safety Report 7716010-2 (Version None)
Quarter: 2011Q3

REPORT INFORMATION
  Report Type: 
  Country: None (occurrence: None)
  Receive Date: 20110812
  Receipt Date: 20110516
  Transmission Date: 20111222
  Serious: Yes (Hospitalization)
  Sender: FDA-Public Use
  Company Number: MEDI-0012801

PATIENT
  Age: 6 Month
  Sex: Male
  Weight: 7.3 kg

DRUGS (3)
  1. POLY VISOL WITH IRON (FERROUS SULFATE, VITAMINS NOS) [Concomitant]
  2. SYNAGIS [Suspect]
     Indication: ANTIVIRAL PROPHYLAXIS
     Dosage: 15 MG/KG, ONCE A MONTH, SUBCUTANEOUS ; 15 MG/KG, ONCE A MONTH, SUBCUTANEOUS
     Route: 058
     Dates: start: 20101130, end: 20110131
  3. SYNAGIS [Suspect]
     Indication: ANTIVIRAL PROPHYLAXIS
     Dosage: 15 MG/KG, ONCE A MONTH, SUBCUTANEOUS ; 15 MG/KG, ONCE A MONTH, SUBCUTANEOUS
     Route: 058
     Dates: start: 20110412, end: 20110412

REACTIONS (2)
  - LACRIMATION INCREASED [None]
  - RESPIRATORY SYNCYTIAL VIRUS INFECTION [None]
